FAERS Safety Report 7410743-3 (Version None)
Quarter: 2011Q2

REPORT INFORMATION
  Report Type: 
  Country: None (occurrence: None)
  Receive Date: 20110413
  Receipt Date: 20110406
  Transmission Date: 20111010
  Serious: Yes (Other)
  Sender: FDA-Public Use
  Company Number: DE-BRISTOL-MYERS SQUIBB COMPANY-15665789

PATIENT
  Age: 45 Year
  Sex: Female

DRUGS (1)
  1. ABILIFY [Suspect]
     Indication: SCHIZOPHRENIA
     Dosage: DOSE TAKEN ONE HALF OF A SPLITTED TABLET ABILIFY 5 MG.

REACTIONS (3)
  - ALOPECIA [None]
  - PSYCHOTIC DISORDER [None]
  - WRONG TECHNIQUE IN DRUG USAGE PROCESS [None]
